FAERS Safety Report 6418912-6 (Version None)
Quarter: 2009Q4

REPORT INFORMATION
  Report Type: 
  Country: None (occurrence: None)
  Receive Date: 20091028
  Receipt Date: 20091028
  Transmission Date: 20100525
  Serious: Yes (Hospitalization)
  Sender: FDA-Public Use
  Company Number: None

PATIENT
  Sex: Male
  Weight: 109.7 kg

DRUGS (1)
  1. TEMOZOLOMIDE [Suspect]
     Indication: ACUTE MYELOID LEUKAEMIA
     Dosage: 100 MG/M2 QD PO
     Route: 048
     Dates: start: 20091021

REACTIONS (2)
  - FEBRILE NEUTROPENIA [None]
  - LUNG NEOPLASM [None]
